FAERS Safety Report 4932412-1 (Version None)
Quarter: 2006Q1

REPORT INFORMATION
  Report Type: 
  Country: None (occurrence: None)
  Receive Date: 20060301
  Receipt Date: 20060216
  Transmission Date: 20060701
  Serious: Yes (Other)
  Sender: FDA-Public Use
  Company Number: 222232

PATIENT
  Age: 32 Year
  Sex: Female

DRUGS (1)
  1. RITUXAN [Suspect]
     Indication: ANAEMIA HAEMOLYTIC AUTOIMMUNE
     Dosage: 375 MG/KG, 1/WEEK

REACTIONS (4)
  - BACTERIAL INFECTION [None]
  - BACTERIAL SEPSIS [None]
  - HYPOGAMMAGLOBULINAEMIA [None]
  - PNEUMONIA BACTERIAL [None]
